FAERS Safety Report 4492783-X (Version None)
Quarter: 2004Q4

REPORT INFORMATION
  Report Type: 
  Country: None (occurrence: None)
  Receive Date: 20041102
  Receipt Date: 20041018
  Transmission Date: 20050328
  Serious: Yes (Hospitalization)
  Sender: FDA-Public Use
  Company Number: B0348491A

PATIENT
  Age: 59 Year
  Sex: Male
  Weight: 74.3446 kg

DRUGS (6)
  1. HYCAMTIN [Suspect]
     Indication: SMALL CELL LUNG CANCER STAGE UNSPECIFIED
     Dosage: INTRAVENOUS
     Route: 042
     Dates: start: 20040922, end: 20040926
  2. CISPLATIN [Suspect]
     Indication: SMALL CELL LUNG CANCER STAGE UNSPECIFIED
     Dosage: INTRAVENOUS
     Route: 042
     Dates: start: 20040926, end: 20040926
  3. PANTOPRAZOLE [Concomitant]
  4. ENOXAPARIN [Concomitant]
  5. LORMETAZEPAM [Concomitant]
  6. ACETYLCYSTEINE [Concomitant]

REACTIONS (1)
  - UNEVALUABLE EVENT [None]
